FAERS Safety Report 12799339 (Version 2)
Quarter: 2016Q4

REPORT INFORMATION
  Report Type: Report from Study
  Country: DE (occurrence: DE)
  Receive Date: 20160930
  Receipt Date: 20161107
  Transmission Date: 20170207
  Serious: Yes (Death, Hospitalization)
  Sender: FDA-Public Use
  Company Number: DE-UCBSA-2016011140

PATIENT
  Age: 75 Year
  Sex: Female

DRUGS (1)
  1. ROTIGOTINE [Suspect]
     Active Substance: ROTIGOTINE
     Indication: PARKINSON^S DISEASE
     Dosage: 8 MG, ONCE DAILY (QD)
     Route: 062
     Dates: start: 20140907, end: 20161028

REACTIONS (1)
  - Fall [Fatal]

NARRATIVE: CASE EVENT DATE: 20160223
